FAERS Safety Report 7108239-1 (Version None)
Quarter: 2010Q4

REPORT INFORMATION
  Report Type: 
  Country: None (occurrence: None)
  Receive Date: 20101117
  Receipt Date: 20101109
  Transmission Date: 20110411
  Serious: Yes (Other)
  Sender: FDA-Public Use
  Company Number: US-ELI_LILLY_AND_COMPANY-US201011002568

PATIENT
  Sex: Female

DRUGS (20)
  1. GEMCITABINE HCL [Suspect]
     Indication: PANCREATIC CARCINOMA
     Dosage: 1000 MG/M2, UNKNOWN
     Route: 065
     Dates: start: 20091216
  2. PACLITAXEL [Suspect]
     Indication: PANCREATIC CARCINOMA
     Dosage: 125 MG/M2, WEEKLY (1/W)
     Route: 065
     Dates: start: 20091216
  3. DEXAMETHASONE [Concomitant]
     Indication: NAUSEA
     Route: 048
     Dates: start: 20091223
  4. HYDROCORTISONE [Concomitant]
     Indication: RASH
     Dosage: UNK, 2/D
     Route: 061
     Dates: start: 20100203
  5. COMPAZINE [Concomitant]
     Indication: PROPHYLAXIS
     Route: 042
     Dates: start: 20091223
  6. PERCOCET [Concomitant]
     Indication: ABDOMINAL PAIN
     Route: 048
     Dates: start: 20091223
  7. LORAZEPAM [Concomitant]
     Indication: ANXIETY
     Route: 048
     Dates: start: 20090801
  8. OXYCODONE HCL [Concomitant]
     Indication: PAIN
     Route: 048
     Dates: start: 20091203
  9. OMEPRAZOLE [Concomitant]
     Indication: GASTROOESOPHAGEAL REFLUX DISEASE
     Route: 048
     Dates: start: 20091216
  10. DOCUSATE [Concomitant]
     Indication: CONSTIPATION
     Dates: start: 20091203
  11. MIRALAX [Concomitant]
     Indication: PROPHYLAXIS
     Route: 048
     Dates: start: 20091216
  12. BISACODYL [Concomitant]
     Indication: CONSTIPATION
     Route: 048
     Dates: start: 20091216
  13. BISACODYL [Concomitant]
     Route: 048
     Dates: start: 20100221
  14. PROMETHAZINE [Concomitant]
     Indication: NAUSEA
     Route: 048
     Dates: start: 20091217
  15. SENOKOT [Concomitant]
     Indication: CONSTIPATION
     Route: 048
     Dates: start: 20090912
  16. MEGACE [Concomitant]
     Indication: DECREASED APPETITE
     Route: 048
     Dates: start: 20091229
  17. NEURONTIN [Concomitant]
     Indication: NEUROPATHY PERIPHERAL
     Route: 048
     Dates: start: 20100210
  18. CREON [Concomitant]
     Indication: PANCREATIC INSUFFICIENCY
     Dates: start: 20100107
  19. MARINOL [Concomitant]
     Indication: NAUSEA
     Route: 048
     Dates: start: 20091229
  20. LASIX [Concomitant]
     Indication: OEDEMA
     Route: 048
     Dates: start: 20100804

REACTIONS (1)
  - PULMONARY EMBOLISM [None]
